FAERS Safety Report 16967830 (Version 5)
Quarter: 2020Q1

REPORT INFORMATION
  Report Type: Spontaneous
  Country: US (occurrence: US)
  Receive Date: 20191028
  Receipt Date: 20200106
  Transmission Date: 20200409
  Serious: No
  Sender: FDA-Public Use
  Company Number: US-PFIZER INC-2019463708

PATIENT
  Age: 72 Year
  Sex: Male
  Weight: 74.84 kg

DRUGS (7)
  1. VYNDAQEL [Suspect]
     Active Substance: TAFAMIDIS MEGLUMINE
     Indication: CARDIAC FAILURE CONGESTIVE
     Dosage: 20 MG, 4X/DAY
  2. ATORVASTATIN [Concomitant]
     Active Substance: ATORVASTATIN
     Indication: BLOOD CHOLESTEROL ABNORMAL
     Dosage: 40 MG, 1X/DAY (40 MG AT NIGHT)
  3. METOPROLOL. [Concomitant]
     Active Substance: METOPROLOL
     Indication: BLOOD PRESSURE ABNORMAL
     Dosage: 12.5 MG, 1X/DAY
  4. VYNDAQEL [Suspect]
     Active Substance: TAFAMIDIS MEGLUMINE
     Indication: CARDIAC AMYLOIDOSIS
     Dosage: 80 MG, 1X/DAY(4 CAPSULES ONCE DAILY) (4-20 MG CAPSULE, ONCE A DAY)
     Route: 048
     Dates: start: 20191021
  5. ELIQUIS [Concomitant]
     Active Substance: APIXABAN
     Indication: ANTICOAGULANT THERAPY
     Dosage: 5 MG, 2X/DAY (ONCE IN THE MORNING AND ONCE AT NIGHT)
     Dates: start: 201612
  6. VYNDAQEL [Suspect]
     Active Substance: TAFAMIDIS MEGLUMINE
     Indication: FAMILIAL AMYLOIDOSIS
     Dosage: 80 MG, 1X/DAY(4 CAPSULES ONCE DAILY) (4-20 MG CAPSULE, ONCE A DAY)
     Route: 048
     Dates: start: 20191021
  7. PLAVIX [Concomitant]
     Active Substance: CLOPIDOGREL BISULFATE
     Dosage: 75 MG, UNK

REACTIONS (20)
  - Fluid retention [Unknown]
  - Body mass index increased [Unknown]
  - Dyspnoea [Not Recovered/Not Resolved]
  - Condition aggravated [Not Recovered/Not Resolved]
  - Peripheral swelling [Unknown]
  - Joint swelling [Unknown]
  - Blood urea nitrogen/creatinine ratio increased [Unknown]
  - Glomerular filtration rate decreased [Unknown]
  - Feeling abnormal [Unknown]
  - Blood creatinine increased [Unknown]
  - Weight decreased [Unknown]
  - Taste disorder [Unknown]
  - Blood urea increased [Unknown]
  - Dry mouth [Recovering/Resolving]
  - Oedema [Unknown]
  - Nausea [Unknown]
  - Hypoaesthesia oral [Unknown]
  - Lip swelling [Unknown]
  - Lip dry [Recovering/Resolving]
  - Blood glucose increased [Unknown]

NARRATIVE: CASE EVENT DATE: 2019
